FAERS Safety Report 18254827 (Version 1)
Quarter: 2020Q3

REPORT INFORMATION
  Report Type: Other
  Country: US (occurrence: US)
  Receive Date: 20200911
  Receipt Date: 20200911
  Transmission Date: 20201103
  Serious: Yes (Hospitalization)
  Sender: FDA-Public Use
  Company Number: US-ROCHE-2674408

PATIENT
  Sex: Female

DRUGS (1)
  1. OCREVUS [Suspect]
     Active Substance: OCRELIZUMAB
     Indication: RELAPSING-REMITTING MULTIPLE SCLEROSIS
     Dosage: ONGOING: YES?DATE OF SUBSEQUENT TREATMENT: 01/MAR/2018, 29/MAR/2018, 28/FEB/2019, 30/AUG/2019 AND 07
     Route: 065
     Dates: start: 20170914

REACTIONS (1)
  - Pneumonia [Unknown]
